FAERS Safety Report 9468605 (Version 3)
Quarter: 2013Q3

REPORT INFORMATION
  Report Type: Report from Study
  Country: US (occurrence: US)
  Receive Date: 20130821
  Receipt Date: 20130920
  Transmission Date: 20140515
  Serious: Yes (Other)
  Sender: FDA-Public Use
  Company Number: US-BAYER-2013-073802

PATIENT
  Age: 72 Year
  Sex: Female

DRUGS (3)
  1. STIVARGA [Suspect]
     Indication: RECTOSIGMOID CANCER
     Dosage: 160 MG, QD
     Route: 048
     Dates: start: 201306, end: 201306
  2. STIVARGA [Suspect]
     Indication: RECTOSIGMOID CANCER
     Dosage: 160 MG X 21 DAYS
     Route: 048
     Dates: start: 20130604
  3. STIVARGA [Suspect]
     Indication: RECTOSIGMOID CANCER
     Dosage: 160 MG X 21 DAYS
     Route: 048
     Dates: start: 20130604, end: 201309

REACTIONS (16)
  - Abdominal pain upper [None]
  - Dermatitis bullous [None]
  - Pain in extremity [None]
  - Motor dysfunction [None]
  - Vomiting [None]
  - Diarrhoea [None]
  - Abdominal pain upper [None]
  - Back pain [None]
  - Dysphonia [Recovering/Resolving]
  - Pain [None]
  - Muscle spasms [None]
  - Hypoaesthesia [None]
  - Erythema [None]
  - Haemorrhage [None]
  - Diarrhoea [None]
  - Micturition frequency decreased [None]
